FAERS Safety Report 8098497 (Version 2)
Quarter: 2014Q2

REPORT INFORMATION
  Report Type: Report from Study
  Country: TR (occurrence: TR)
  Receive Date: 20110819
  Receipt Date: 20140410
  Transmission Date: 20141212
  Serious: Yes (Death, Hospitalization)
  Sender: FDA-Public Use
  Company Number: PHHO2011TR14008

PATIENT
  Sex: 0

DRUGS (2)
  1. ALLOPURINOL [Suspect]
  2. EVEROLIMUS [Suspect]
     Dosage: 10 MG, UNK
     Route: 048
     Dates: start: 20110602, end: 20110718

REACTIONS (1)
  - Death [Fatal]
